FAERS Safety Report 4748212-1 (Version None)
Quarter: 2005Q3

REPORT INFORMATION
  Report Type: 
  Country: None (occurrence: None)
  Receive Date: 20050818
  Receipt Date: 20050808
  Transmission Date: 20060218
  Serious: Yes (Death, Hospitalization)
  Sender: FDA-Public Use
  Company Number: FR-BRISTOL-MYERS SQUIBB COMPANY-13068598

PATIENT
  Age: 74 Year
  Sex: Female

DRUGS (4)
  1. EFFERALGAN [Suspect]
     Indication: BACK PAIN
     Route: 048
     Dates: start: 20040706, end: 20040716
  2. MUCOMYST [Suspect]
     Indication: BACK PAIN
     Route: 048
     Dates: start: 20040706, end: 20040716
  3. BROMAZEPAM [Suspect]
     Indication: BACK PAIN
     Dates: start: 20040706, end: 20040716
  4. FELDENE [Suspect]
     Indication: BACK PAIN
     Dates: start: 20040706, end: 20040716

REACTIONS (6)
  - ACUTE RESPIRATORY DISTRESS SYNDROME [None]
  - BRONCHOPLEURAL FISTULA [None]
  - CONDITION AGGRAVATED [None]
  - SEPSIS [None]
  - SEPTIC SHOCK [None]
  - WHITE BLOOD CELL COUNT INCREASED [None]
